FAERS Safety Report 10023049 (Version 1)
Quarter: 2014Q1

REPORT INFORMATION
  Report Type: Spontaneous
  Country: US (occurrence: US)
  Receive Date: 20140319
  Receipt Date: 20140319
  Transmission Date: 20141002
  Serious: No
  Sender: FDA-Public Use
  Company Number: US-009507513-1403USA000818

PATIENT
  Sex: Female

DRUGS (1)
  1. DR. SCHOLL^S DREAMWALK ULTRA OVERNIGHT FOOT CREAM [Suspect]
     Indication: DRY SKIN
     Dosage: UNK UNK, QPM
     Route: 061

REACTIONS (1)
  - Drug ineffective [Unknown]
